FAERS Safety Report 25701079 (Version 1)
Quarter: 2025Q3

REPORT INFORMATION
  Report Type: Spontaneous
  Country: US (occurrence: US)
  Receive Date: 20250819
  Receipt Date: 20250819
  Transmission Date: 20251020
  Serious: No
  Sender: PFIZER
  Company Number: US-PFIZER INC-202500165230

PATIENT
  Age: 61 Year
  Sex: Female

DRUGS (2)
  1. IBRANCE [Suspect]
     Active Substance: PALBOCICLIB
  2. FEMARA [Suspect]
     Active Substance: LETROZOLE

REACTIONS (8)
  - Neck pain [Unknown]
  - Arthralgia [Unknown]
  - Muscle tightness [Unknown]
  - Pruritus [Unknown]
  - Rash [Unknown]
  - Irritability [Not Recovered/Not Resolved]
  - Headache [Recovered/Resolved]
  - Myalgia [Unknown]
